FAERS Safety Report 5955202-X (Version None)
Quarter: 2008Q4

REPORT INFORMATION
  Report Type: 
  Country: None (occurrence: None)
  Receive Date: 20081117
  Receipt Date: 20081106
  Transmission Date: 20090506
  Serious: Yes (Hospitalization)
  Sender: FDA-Public Use
  Company Number: JP-BAYER-200812704BYL

PATIENT
  Age: 53 Year
  Sex: Female
  Weight: 44 kg

DRUGS (10)
  1. NEXAVAR [Suspect]
     Indication: RENAL CELL CARCINOMA STAGE IV
     Route: 048
     Dates: start: 20080904
  2. NEXAVAR [Suspect]
     Route: 048
  3. URSO 250 [Concomitant]
     Indication: RENAL CELL CARCINOMA STAGE IV
     Route: 048
     Dates: start: 20071214
  4. OXYCONTIN [Concomitant]
     Indication: RENAL CELL CARCINOMA STAGE IV
     Route: 048
     Dates: start: 20080121
  5. MAGLAX [Concomitant]
     Indication: CONSTIPATION
     Route: 048
     Dates: start: 20080207
  6. THYRADIN [Concomitant]
     Indication: HYPOTHYROIDISM
     Route: 048
     Dates: start: 20080306
  7. LANSOPRAZOLE [Concomitant]
     Indication: GASTRIC ULCER
     Route: 048
     Dates: start: 20080519
  8. FAMOTIDINE [Concomitant]
     Indication: GASTRIC ULCER
     Route: 048
     Dates: start: 20080909, end: 20080917
  9. GASMOTIN [Concomitant]
     Route: 048
     Dates: start: 20080909
  10. LAC-B [Concomitant]
     Route: 048
     Dates: start: 20080909

REACTIONS (2)
  - HEPATIC FUNCTION ABNORMAL [None]
  - PALMAR-PLANTAR ERYTHRODYSAESTHESIA SYNDROME [None]
